FAERS Safety Report 6599579-3 (Version None)
Quarter: 2010Q1

REPORT INFORMATION
  Report Type: 
  Country: None (occurrence: None)
  Receive Date: 20100224
  Receipt Date: 20100211
  Transmission Date: 20100710
  Serious: Yes (Death)
  Sender: FDA-Public Use
  Company Number: ID-ELI_LILLY_AND_COMPANY-ID201001002741

PATIENT
  Age: 65 Year
  Sex: Male

DRUGS (4)
  1. OLANZAPINE [Suspect]
     Indication: DYSPNOEA
     Dosage: 5 MG, DAILY (1/D)
     Route: 065
  2. OLANZAPINE [Suspect]
     Dosage: 7.5 MG, DAILY (1/D)
     Route: 065
  3. OLANZAPINE [Suspect]
     Dosage: 2.5 MG, DAILY (1/D)
     Route: 065
  4. ANTIDEPRESSANTS [Concomitant]
     Indication: DYSPNOEA
     Dosage: UNK, UNKNOWN
     Route: 065

REACTIONS (7)
  - DEATH [None]
  - DEPRESSED LEVEL OF CONSCIOUSNESS [None]
  - DYSPNOEA [None]
  - INSOMNIA [None]
  - MALAISE [None]
  - OFF LABEL USE [None]
  - SALIVARY HYPERSECRETION [None]
